FAERS Safety Report 13935979 (Version 1)
Quarter: 2017Q3

REPORT INFORMATION
  Report Type: Spontaneous
  Country: ES (occurrence: ES)
  Receive Date: 20170905
  Receipt Date: 20170905
  Transmission Date: 20171127
  Serious: Yes (Hospitalization)
  Sender: FDA-Public Use
  Company Number: ES-NOVAST LABORATORIES, LTD-ES-2017NOV000056

PATIENT
  Age: 52 Year
  Sex: Female
  Weight: 40 kg

DRUGS (2)
  1. NORETHINDRONE. [Suspect]
     Active Substance: NORETHINDRONE
     Indication: MENORRHAGIA
     Dosage: 10 MG, QD
  2. NORETHINDRONE. [Suspect]
     Active Substance: NORETHINDRONE
     Indication: DYSMENORRHOEA

REACTIONS (2)
  - Peripheral ischaemia [Unknown]
  - Arterial thrombosis [Unknown]
